FAERS Safety Report 12135200 (Version 2)
Quarter: 2016Q1

REPORT INFORMATION
  Report Type: Report from Study
  Country: US (occurrence: US)
  Receive Date: 20160301
  Receipt Date: 20160322
  Transmission Date: 20160526
  Serious: Yes (Other)
  Sender: FDA-Public Use
  Company Number: US-AMGEN-USACT2016001713

PATIENT
  Sex: Female

DRUGS (1)
  1. DENOSUMAB [Suspect]
     Active Substance: DENOSUMAB
     Indication: BONE GIANT CELL TUMOUR
     Dosage: 120 MG, QMO
     Dates: start: 20110428

REACTIONS (2)
  - Abortion spontaneous [Unknown]
  - Pregnancy of partner [Not Recovered/Not Resolved]

NARRATIVE: CASE EVENT DATE: 20160216
